FAERS Safety Report 13017247 (Version 1)
Quarter: 2016Q4

REPORT INFORMATION
  Report Type: Spontaneous
  Country: US (occurrence: US)
  Receive Date: 20161209
  Receipt Date: 20161209
  Transmission Date: 20170207
  Serious: Yes (Hospitalization)
  Sender: FDA-Public Use
  Company Number: None

PATIENT
  Age: 25 Year
  Sex: Male

DRUGS (2)
  1. TRAZODONE [Concomitant]
     Active Substance: TRAZODONE HYDROCHLORIDE
  2. COLISTIN 150MG X-GEN [Suspect]
     Active Substance: COLISTIN
     Dates: start: 20160426

REACTIONS (1)
  - Malaise [None]

NARRATIVE: CASE EVENT DATE: 20161207
